FAERS Safety Report 7969062-9 (Version None)
Quarter: 2011Q4

REPORT INFORMATION
  Report Type: 
  Country: None (occurrence: None)
  Receive Date: 20111208
  Receipt Date: 20111122
  Transmission Date: 20120403
  Serious: Yes (Death)
  Sender: FDA-Public Use
  Company Number: 7099468

PATIENT
  Sex: Male

DRUGS (2)
  1. HYDROXOCOBALAMIN [Suspect]
     Indication: PROPHYLAXIS
  2. HYDROGEN SULFIDE (ALL OTHER THERAPEUTIC PRODUCTS)(HYDROGEN SULFIDE) [Suspect]

REACTIONS (4)
  - COMPLETED SUICIDE [None]
  - CHEMICAL POISONING [None]
  - OFF LABEL USE [None]
  - RESUSCITATION [None]
